FAERS Safety Report 10524890 (Version 2)
Quarter: 2015Q2

REPORT INFORMATION
  Report Type: Spontaneous
  Country: US (occurrence: US)
  Receive Date: 20141017
  Receipt Date: 20150401
  Transmission Date: 20150821
  Serious: Yes (Other)
  Sender: FDA-Public Use
  Company Number: US-SA-2014SA140431

PATIENT
  Age: 66 Year
  Sex: Female

DRUGS (30)
  1. ACICLOVIR [Concomitant]
     Active Substance: ACYCLOVIR
     Dosage: STRENGTH:800MG
     Route: 048
  2. FLUTICASONE PROPIONATE. [Concomitant]
     Active Substance: FLUTICASONE PROPIONATE
     Dosage: DOSE: 2 SPRAY IN EACH NOSTRIL EVERY DAY.
     Route: 045
  3. ANASTROZOLE. [Concomitant]
     Active Substance: ANASTROZOLE
     Dosage: STRENGTH:1 MG.
     Route: 048
  4. METOPROLOL SUCCINATE. [Concomitant]
     Active Substance: METOPROLOL SUCCINATE
     Route: 048
  5. VERAMYST [Concomitant]
     Active Substance: FLUTICASONE FUROATE
     Route: 045
  6. LOVENOX [Concomitant]
     Active Substance: ENOXAPARIN SODIUM
     Dosage: STRENGTH:30MG/0.3ML, SYRINGE
  7. CYCLOBENZAPRINE HYDROCHLORIDE. [Concomitant]
     Active Substance: CYCLOBENZAPRINE HYDROCHLORIDE
     Route: 048
  8. CETIRIZINE HYDROCHLORIDE. [Concomitant]
     Active Substance: CETIRIZINE HYDROCHLORIDE
  9. IPRATROPIUM BROMIDE. [Concomitant]
     Active Substance: IPRATROPIUM BROMIDE
     Dosage: STRENGTH:21MCG NASAL SPRAY
     Route: 045
  10. NEVANAC [Concomitant]
     Active Substance: NEPAFENAC
     Dosage: STRENGTH: 0.1 %, DROPS SUSP
     Route: 047
  11. ACETAMINOPHEN W/HYDROCODONE BITARTRATE [Concomitant]
     Active Substance: ACETAMINOPHEN\HYDROCODONE BITARTRATE
     Route: 048
  12. CHLORHEXIDINE GLUCONATE. [Concomitant]
     Active Substance: CHLORHEXIDINE GLUCONATE
     Dosage: 0.12 %, MOUTHWASH, MUCOUS MEM
  13. IPRATROPIUM BROMIDE. [Concomitant]
     Active Substance: IPRATROPIUM BROMIDE
     Dosage: STRENGTH: 21MCG, NASAL SPRAY, APOTEX CORP, 30 ML CANISTER
     Route: 045
  14. ULTRAM [Concomitant]
     Active Substance: TRAMADOL HYDROCHLORIDE
     Dosage: STRENGTH:100 MG,TAB ER 24H
     Route: 048
  15. AMOXICILLIN. [Concomitant]
     Active Substance: AMOXICILLIN
     Route: 048
  16. CELEBREX [Concomitant]
     Active Substance: CELECOXIB
     Dosage: STRENGTH:200 MG
     Route: 048
  17. OMEPRAZOLE. [Concomitant]
     Active Substance: OMEPRAZOLE
     Dosage: STRENGTH: 20MG.
     Route: 048
  18. CALCIUM CARBONATE. [Concomitant]
     Active Substance: CALCIUM CARBONATE
     Route: 048
  19. MULTAQ [Suspect]
     Active Substance: DRONEDARONE
     Indication: ATRIAL FIBRILLATION
     Route: 065
     Dates: start: 2009, end: 201210
  20. FLECAINIDE ACETATE. [Concomitant]
     Active Substance: FLECAINIDE ACETATE
     Route: 048
  21. IBUPROFEN. [Concomitant]
     Active Substance: IBUPROFEN
     Dosage: STRENGTH: 600MG
     Route: 048
  22. DEXAMETHASONE/TOBRAMYCIN [Concomitant]
     Dosage: STRENGTH:0.3 %-0.1%, DROPS SUSP
     Route: 047
  23. VIGAMOX [Concomitant]
     Active Substance: MOXIFLOXACIN HYDROCHLORIDE
     Dosage: STRENGTH:0.5 %, DROPS,.
     Route: 047
  24. ALBUTEROL SULFATE. [Concomitant]
     Active Substance: ALBUTEROL SULFATE
     Indication: DYSPNOEA
     Dosage: STRENGTH: 0.09MG/ACTUATION AEROSOL?DOSE: INHALE 2 PUFFS ORALLY EVERY 4 HOURS AS NEEDED
     Route: 048
  25. ALENDRONATE SODIUM. [Concomitant]
     Active Substance: ALENDRONATE SODIUM
     Dosage: AT LEAST 30 MINUTES BEFORE FOOD OR OTHER MEDICATIONS
     Route: 048
  26. DABIGATRAN ETEXILATE MESILATE [Concomitant]
     Dosage: STRENGTH: 150MG
     Route: 048
  27. ATORVASTATIN CALCIUM. [Concomitant]
     Active Substance: ATORVASTATIN CALCIUM
     Indication: HYPERCHOLESTEROLAEMIA
     Dosage: STRENGTH: 20MG.
     Route: 048
  28. AZITHROMYCIN [Concomitant]
     Active Substance: AZITHROMYCIN ANHYDROUS
     Dosage: 250 MG, TEVA USA, 6 EA. BLIST PACK
     Route: 048
  29. PENICILLIN V POTASSIUM. [Concomitant]
     Active Substance: PENICILLIN V POTASSIUM
     Dosage: STRENGTH:500 MG
     Route: 048
  30. TRAMADOL HYDROCHLORIDE. [Concomitant]
     Active Substance: TRAMADOL HYDROCHLORIDE
     Dosage: STRENGTH: 50MG TABLET
     Route: 048

REACTIONS (1)
  - Idiopathic pulmonary fibrosis [Unknown]

NARRATIVE: CASE EVENT DATE: 201210
